FAERS Safety Report 22361937 (Version 5)
Quarter: 2025Q4

REPORT INFORMATION
  Report Type: Report from Study
  Country: CA (occurrence: CA)
  Receive Date: 20230524
  Receipt Date: 20251111
  Transmission Date: 20260117
  Serious: Yes (Other)
  Sender: BIOCON
  Company Number: CA-MYLANLABS-2023M1053108

PATIENT

DRUGS (5)
  1. HULIO [Suspect]
     Active Substance: ADALIMUMAB-FKJP
     Indication: Rheumatoid arthritis
     Dosage: 40 MG, BIWEEKLY
     Route: 058
     Dates: start: 20230118
  2. HULIO [Suspect]
     Active Substance: ADALIMUMAB-FKJP
  3. HULIO [Suspect]
     Active Substance: ADALIMUMAB-FKJP
  4. HULIO [Suspect]
     Active Substance: ADALIMUMAB-FKJP
  5. HULIO [Suspect]
     Active Substance: ADALIMUMAB-FKJP

REACTIONS (8)
  - Eye haemorrhage [Unknown]
  - Rheumatoid arthritis [Unknown]
  - Therapy interrupted [Unknown]
  - Pain [Unknown]
  - Eye swelling [Unknown]
  - Inability to afford medication [Unknown]
  - Product dose omission issue [Unknown]
  - Off label use [Unknown]
